FAERS Safety Report 6382731-X (Version None)
Quarter: 2009Q3

REPORT INFORMATION
  Report Type: 
  Country: None (occurrence: None)
  Receive Date: 20090928
  Receipt Date: 20090928
  Transmission Date: 20100115
  Serious: Yes (Disabling)
  Sender: FDA-Public Use
  Company Number: None

PATIENT
  Age: 70 Year
  Sex: Male
  Weight: 72.5755 kg

DRUGS (2)
  1. MOXIFLOXACIN HCL [Suspect]
     Indication: INFECTION PROPHYLAXIS
     Dosage: 1 DROP QID OPTHALMIC
     Route: 047
     Dates: start: 20090822, end: 20090829
  2. MOXIFLOXACIN HCL [Suspect]
     Indication: INFECTION PROPHYLAXIS
     Dosage: 1 DROP QID OPTHALMIC
     Route: 047
     Dates: start: 20090905, end: 20090912

REACTIONS (5)
  - ABASIA [None]
  - EXERCISE TOLERANCE DECREASED [None]
  - MUSCULOSKELETAL PAIN [None]
  - PROCEDURAL SITE REACTION [None]
  - TENDONITIS [None]
